FAERS Safety Report 7496950-2 (Version None)
Quarter: 2011Q2

REPORT INFORMATION
  Report Type: 
  Country: None (occurrence: None)
  Receive Date: 20110523
  Receipt Date: 20110513
  Transmission Date: 20111010
  Serious: Yes (Hospitalization)
  Sender: FDA-Public Use
  Company Number: FR-MERCK-1105USA02948

PATIENT
  Age: 79 Year
  Sex: Female

DRUGS (8)
  1. PRAVASTATIN SODIUM [Suspect]
     Indication: CARDIOMYOPATHY
     Route: 048
  2. LEVOTHYROXINE SODIUM [Suspect]
     Indication: THYROIDECTOMY
     Route: 048
  3. ESCITALOPRAM [Suspect]
     Route: 048
     Dates: end: 20110215
  4. PREVISCAN [Suspect]
     Indication: ATRIAL FIBRILLATION
     Dosage: 3/4-1/4 (1 DOSAGE FORM)
     Route: 048
     Dates: end: 20110215
  5. ASPIRIN [Suspect]
     Indication: CARDIOMYOPATHY
     Route: 048
     Dates: end: 20110215
  6. BISOPROLOL FUMARATE [Suspect]
     Indication: CARDIOMYOPATHY
     Route: 065
  7. NOROXIN [Suspect]
     Indication: URINARY TRACT INFECTION
     Route: 048
     Dates: start: 20110212, end: 20110215
  8. NEXIUM [Concomitant]
     Indication: GASTROINTESTINAL ULCER
     Route: 048

REACTIONS (2)
  - INTERNATIONAL NORMALISED RATIO INCREASED [None]
  - MELAENA [None]
